FAERS Safety Report 8200733-5 (Version None)
Quarter: 2012Q1

REPORT INFORMATION
  Report Type: 
  Country: None (occurrence: None)
  Receive Date: 20120312
  Receipt Date: 20110906
  Transmission Date: 20120608
  Serious: Yes (Other)
  Sender: FDA-Public Use
  Company Number: US-UCBSA-025114

PATIENT
  Age: 24 Year
  Sex: Female
  Weight: 64.41 kg

DRUGS (4)
  1. LACOSAMIDE [Suspect]
     Indication: PARTIAL SEIZURES
     Dosage: 400 MG
     Route: 065
     Dates: start: 20101008
  2. IBUPROFEN (ADVIL) [Concomitant]
     Indication: HEADACHE
     Dosage: AS NEEDED
     Route: 067
     Dates: start: 20100817
  3. DRAMAMINE [Concomitant]
     Indication: MOTION SICKNESS
     Route: 067
     Dates: start: 20101107, end: 20101107
  4. EXCEDRIN [Concomitant]
     Indication: HEADACHE
     Dosage: AS NEEDED
     Route: 067
     Dates: start: 20100930

REACTIONS (2)
  - CAESAREAN SECTION [None]
  - EXPOSURE VIA SEMEN [None]
